FAERS Safety Report 5175694-6 (Version None)
Quarter: 2006Q4

REPORT INFORMATION
  Report Type: 
  Country: None (occurrence: None)
  Receive Date: 20061212
  Receipt Date: 20061212
  Transmission Date: 20070319
  Serious: No
  Sender: FDA-Public Use
  Company Number: None

PATIENT
  Age: 58 Year
  Sex: Male
  Weight: 73.6 kg

DRUGS (1)
  1. ZOSYN [Suspect]
     Dosage: INJECTION

REACTIONS (4)
  - DOCUMENTED HYPERSENSITIVITY TO ADMINISTERED DRUG [None]
  - MEDICATION ERROR [None]
  - MULTI-ORGAN FAILURE [None]
  - SWELLING [None]
